FAERS Safety Report 24538616 (Version 1)
Quarter: 2024Q4

REPORT INFORMATION
  Report Type: Report from Study
  Country: TW (occurrence: TW)
  Receive Date: 20241023
  Receipt Date: 20241023
  Transmission Date: 20250114
  Serious: Yes (Hospitalization)
  Sender: TAKEDA
  Company Number: TW-SA-2024SA299432

PATIENT
  Age: 1 Year
  Sex: Male

DRUGS (1)
  1. IDURSULFASE [Suspect]
     Active Substance: IDURSULFASE
     Indication: Mucopolysaccharidosis II
     Dosage: 60 MILLIGRAM, 1/WEEK
     Route: 042
     Dates: start: 20240607

REACTIONS (3)
  - Device related infection [Recovering/Resolving]
  - Bone marrow disorder [Unknown]
  - Pyrexia [Recovering/Resolving]

NARRATIVE: CASE EVENT DATE: 20240922
